FAERS Safety Report 9075028 (Version 3)
Quarter: 2013Q1

REPORT INFORMATION
  Report Type: Spontaneous
  Country: US (occurrence: US)
  Receive Date: 20130129
  Receipt Date: 20130226
  Transmission Date: 20140127
  Serious: No
  Sender: FDA-Public Use
  Company Number: US-TEVA-382553USA

PATIENT
  Sex: Male

DRUGS (4)
  1. PROAIR HFA [Suspect]
     Indication: ASTHMA
     Dosage: PRN
     Route: 055
     Dates: start: 201212, end: 201302
  2. FLOVENT [Concomitant]
  3. MULTIVITAMIN [Concomitant]
  4. CHILDREN^S FISH OIL [Concomitant]

REACTIONS (1)
  - Headache [Recovered/Resolved]
